FAERS Safety Report 8316993 (Version 2)
Quarter: 2013Q2

REPORT INFORMATION
  Report Type: Spontaneous
  Country: VE (occurrence: VE)
  Receive Date: 20111230
  Receipt Date: 20130522
  Transmission Date: 20140414
  Serious: Yes (Other)
  Sender: FDA-Public Use
  Company Number: VE-ROCHE-1025992

PATIENT
  Age: 7 Year
  Sex: Female

DRUGS (3)
  1. XOLAIR [Suspect]
     Indication: ASTHMA
     Route: 058
     Dates: start: 201102
  2. XOLAIR [Suspect]
     Route: 058
     Dates: end: 201202
  3. DESALEX [Concomitant]

REACTIONS (2)
  - Asthma [Recovered/Resolved]
  - Sneezing [Unknown]
